FAERS Safety Report 8381920-2 (Version None)
Quarter: 2012Q2

REPORT INFORMATION
  Report Type: 
  Country: None (occurrence: None)
  Receive Date: 20120524
  Receipt Date: 20120509
  Transmission Date: 20120825
  Serious: Yes (Other)
  Sender: FDA-Public Use
  Company Number: CA-JNJFOC-20120510270

PATIENT
  Sex: Female

DRUGS (2)
  1. REMICADE [Suspect]
     Indication: ANKYLOSING SPONDYLITIS
     Dosage: 6TH INFUSION
     Route: 042
     Dates: start: 20120509
  2. REMICADE [Suspect]
     Route: 042

REACTIONS (1)
  - SMEAR CERVIX ABNORMAL [None]
